FAERS Safety Report 4607369-3 (Version None)
Quarter: 2005Q1

REPORT INFORMATION
  Report Type: 
  Country: None (occurrence: None)
  Receive Date: 20050310
  Receipt Date: 20050223
  Transmission Date: 20050727
  Serious: Yes (Other)
  Sender: FDA-Public Use
  Company Number: 2005S1000069

PATIENT
  Age: 85 Year
  Sex: Male
  Weight: 70 kg

DRUGS (1)
  1. ACITRETIN  (ACITRETIN) [Suspect]
     Indication: PSORIASIS
     Dosage: QD; PO
     Route: 048
     Dates: start: 20040201, end: 20050120

REACTIONS (3)
  - CONTUSION [None]
  - ERYTHEMA [None]
  - INCREASED TENDENCY TO BRUISE [None]
